FAERS Safety Report 18395598 (Version 7)
Quarter: 2020Q4

REPORT INFORMATION
  Report Type: Spontaneous
  Country: SK (occurrence: SK)
  Receive Date: 20201017
  Receipt Date: 20201119
  Transmission Date: 20210114
  Serious: Yes (Other)
  Sender: FDA-Public Use
  Company Number: SK-ROCHE-2696929

PATIENT
  Age: 46 Year
  Sex: Male

DRUGS (6)
  1. OCREVUS [Suspect]
     Active Substance: OCRELIZUMAB
     Route: 042
     Dates: start: 20201028
  2. NIDRAZID [Concomitant]
     Active Substance: ISONIAZID
     Dosage: 3 TBL IN THE MORNING
     Dates: start: 20200820
  3. BACLOFEN. [Concomitant]
     Active Substance: BACLOFEN
     Dosage: 1-0-1 LONG-TERM, AT LEAST FOR 3 YEARS
  4. PYRIDOXINE [Concomitant]
     Active Substance: PYRIDOXINE
     Dosage: 3X1
  5. OCREVUS [Suspect]
     Active Substance: OCRELIZUMAB
     Indication: RELAPSING-REMITTING MULTIPLE SCLEROSIS
     Route: 042
     Dates: start: 20200414
  6. OCREVUS [Suspect]
     Active Substance: OCRELIZUMAB
     Route: 042
     Dates: start: 20200429

REACTIONS (1)
  - Latent tuberculosis [Unknown]
